FAERS Safety Report 6046590-7 (Version None)
Quarter: 2009Q1

REPORT INFORMATION
  Report Type: 
  Country: None (occurrence: None)
  Receive Date: 20090122
  Receipt Date: 20090113
  Transmission Date: 20090719
  Serious: Yes (Other)
  Sender: FDA-Public Use
  Company Number: PHHY2009GB01296

PATIENT
  Age: 69 Year
  Sex: Male

DRUGS (7)
  1. ALISKIREN [Suspect]
     Indication: CARDIAC FAILURE
     Dosage: UNK
     Route: 048
     Dates: start: 20081111, end: 20081120
  2. BECLOMETASONE [Concomitant]
     Indication: CHRONIC OBSTRUCTIVE PULMONARY DISEASE
     Dosage: UNK
     Dates: start: 20080417
  3. CALCITONIN [Concomitant]
     Indication: OSTEOPOROSIS
     Dosage: UNK
     Dates: start: 20081027
  4. EZETIMIBE [Concomitant]
     Indication: PROPHYLAXIS
     Dosage: UNK
     Dates: start: 20040913
  5. FUROSEMIDE [Concomitant]
     Indication: CARDIAC FAILURE CHRONIC
     Dosage: UNK
     Route: 048
     Dates: start: 20080311
  6. IPRATROPIUM BROMIDE [Concomitant]
     Indication: CHRONIC OBSTRUCTIVE PULMONARY DISEASE
     Dosage: UNK
     Dates: start: 20050727
  7. SPIRONOLACTONE [Concomitant]
     Indication: CARDIAC FAILURE CHRONIC
     Dosage: UNK
     Route: 048
     Dates: start: 20030404

REACTIONS (3)
  - ARTHRALGIA [None]
  - MUSCULAR WEAKNESS [None]
  - ORTHOPNOEA [None]
